FAERS Safety Report 8955686 (Version 1)
Quarter: 2012Q4

REPORT INFORMATION
  Report Type: 
  Country: US (occurrence: US)
  Receive Date: 20121207
  Receipt Date: 20121207
  Transmission Date: 20130627
  Serious: No
  Sender: FDA-Public Use
  Company Number: US-009507513-1212USA000442

PATIENT
  Age: 63 Year
  Sex: Female
  Weight: 53.52 kg

DRUGS (8)
  1. VICTRELIS [Suspect]
     Dosage: 4 Capsules, tid
     Route: 048
  2. PEGASYS [Suspect]
     Dosage: UNK
     Route: 058
  3. RIBAVIRIN [Suspect]
     Route: 048
  4. GABAPENTIN [Concomitant]
     Route: 048
  5. CITALOPRAM [Concomitant]
     Dosage: UNK
     Route: 048
  6. MIRTAZAPINE [Concomitant]
     Route: 048
  7. IBUPROFEN [Concomitant]
     Dosage: UNK
     Route: 048
  8. HYDROXYZINE HYDROCHLORIDE [Concomitant]
     Route: 048

REACTIONS (2)
  - Nausea [Unknown]
  - Insomnia [Unknown]
